FAERS Safety Report 20137807 (Version 1)
Quarter: 2021Q4

REPORT INFORMATION
  Report Type: Spontaneous
  Country: US (occurrence: US)
  Receive Date: 20211202
  Receipt Date: 20211202
  Transmission Date: 20220303
  Serious: Yes (Hospitalization)
  Sender: FDA-Public Use
  Company Number: US-SA-SAC20211128000373

PATIENT
  Age: 45 Year
  Sex: Female

DRUGS (22)
  1. AUBAGIO [Suspect]
     Active Substance: TERIFLUNOMIDE
     Indication: Multiple sclerosis
     Dosage: 14 MG, QD
     Route: 048
     Dates: start: 20160203
  2. BLAZTER [Concomitant]
  3. ROPINIROLE [Concomitant]
     Active Substance: ROPINIROLE
     Dosage: 20MG
  4. CYCLOBENZAPRINE [Concomitant]
     Active Substance: CYCLOBENZAPRINE
     Dosage: 20MG
  5. PREDNISONE [Concomitant]
     Active Substance: PREDNISONE
     Dosage: 20MG
  6. BACTRIM [Concomitant]
     Active Substance: SULFAMETHOXAZOLE\TRIMETHOPRIM
     Dosage: 20MG
  7. PROZAC [Concomitant]
     Active Substance: FLUOXETINE HYDROCHLORIDE
     Dosage: 20MG
  8. FIORICET [Concomitant]
     Active Substance: ACETAMINOPHEN\BUTALBITAL\CAFFEINE
     Dosage: 40080MG
  9. SINGULAIR [Concomitant]
     Active Substance: MONTELUKAST SODIUM
     Dosage: 200MG
  10. TOPAMAX [Concomitant]
     Active Substance: TOPIRAMATE
     Dosage: 10MG
  11. ZYRTECNO [Concomitant]
     Dosage: 25MG
  12. JARDIANCE [Concomitant]
     Active Substance: EMPAGLIFLOZIN
     Dosage: 25MG
  13. LINZESS [Concomitant]
     Active Substance: LINACLOTIDE
     Dosage: 10MG
  14. BACLOFEN [Concomitant]
     Active Substance: BACLOFEN
     Dosage: 600MG
  15. GABAPENTIN [Concomitant]
     Active Substance: GABAPENTIN
     Dosage: 40MG
  16. LISINOPRIL [Concomitant]
     Active Substance: LISINOPRIL
     Dosage: 30MGS
  17. PANTOPRAZOLE [Concomitant]
     Active Substance: PANTOPRAZOLE
     Dosage: 20MG
  18. PAROXETINE WINTHROP [Concomitant]
     Dosage: 5MG
  19. SIMVASTATIN [Concomitant]
     Active Substance: SIMVASTATIN
     Dosage: 5MG
  20. TRADJENTA [Concomitant]
     Active Substance: LINAGLIPTIN
     Dosage: 5MG
  21. COTYLENOL [Concomitant]
     Dosage: 20MG
  22. CHLORTHALIDONE [Concomitant]
     Active Substance: CHLORTHALIDONE

REACTIONS (1)
  - COVID-19 [Recovered/Resolved]
